FAERS Safety Report 8026898-6 (Version None)
Quarter: 2012Q1

REPORT INFORMATION
  Report Type: 
  Country: None (occurrence: None)
  Receive Date: 20120106
  Receipt Date: 20120103
  Transmission Date: 20120608
  Serious: No
  Sender: FDA-Public Use
  Company Number: US-PFIZER INC-2012001227

PATIENT
  Sex: Female
  Weight: 63 kg

DRUGS (2)
  1. ADVIL CONGESTION RELIEF [Suspect]
     Indication: DYSPNOEA
     Dosage: UNK
     Dates: start: 20111231, end: 20120101
  2. ADVIL CONGESTION RELIEF [Suspect]
     Indication: NASAL CONGESTION

REACTIONS (1)
  - SOMNOLENCE [None]
